FAERS Safety Report 5510686-6 (Version None)
Quarter: 2007Q4

REPORT INFORMATION
  Report Type: 
  Country: None (occurrence: None)
  Receive Date: 20071107
  Receipt Date: 20071025
  Transmission Date: 20080405
  Serious: Yes (Hospitalization)
  Sender: FDA-Public Use
  Company Number: 2007PV033625

PATIENT
  Age: 59 Year
  Sex: Female

DRUGS (9)
  1. SYMLIN [Suspect]
     Indication: TYPE 2 DIABETES MELLITUS
     Dosage: 120 MCG;TID;SC
     Route: 058
  2. INSULIN [Concomitant]
  3. ELAVIL [Concomitant]
  4. SALICYLIC ACID [Concomitant]
  5. LASIX [Concomitant]
  6. ZESTORETIC [Concomitant]
  7. AVAPRO [Concomitant]
  8. LOPRESSOR [Concomitant]
  9. ZOLOFT [Concomitant]

REACTIONS (3)
  - CHEST PAIN [None]
  - PALPITATIONS [None]
  - VENTRICULAR HYPERTROPHY [None]
